FAERS Safety Report 6244103-8 (Version None)
Quarter: 2009Q2

REPORT INFORMATION
  Report Type: 
  Country: None (occurrence: None)
  Receive Date: 20090623
  Receipt Date: 20090623
  Transmission Date: 20091009
  Serious: Yes (Hospitalization)
  Sender: FDA-Public Use
  Company Number: None

PATIENT
  Sex: Female
  Weight: 64 kg

DRUGS (3)
  1. CARBOPLATIN [Suspect]
     Dosage: 436 MG
     Dates: end: 20090519
  2. TAXOL [Suspect]
     Dosage: 296 MG
     Dates: end: 20090519
  3. ASPIRIN [Concomitant]

REACTIONS (2)
  - GASTRITIS [None]
  - ILEUS [None]
